FAERS Safety Report 8336772-3 (Version None)
Quarter: 2012Q2

REPORT INFORMATION
  Report Type: 
  Country: None (occurrence: None)
  Receive Date: 20120504
  Receipt Date: 20100615
  Transmission Date: 20120825
  Serious: No
  Sender: FDA-Public Use
  Company Number: US-TEVA-2010003261

PATIENT
  Sex: Female
  Weight: 49.94 kg

DRUGS (2)
  1. MAXALT [Concomitant]
     Indication: MIGRAINE
     Dates: start: 20040101
  2. NUVIGIL [Suspect]
     Indication: FATIGUE
     Dosage: 250 MILLIGRAM;
     Route: 048
     Dates: start: 20091201, end: 20091201

REACTIONS (1)
  - INSOMNIA [None]
